FAERS Safety Report 21053136 (Version 1)
Quarter: 2022Q3

REPORT INFORMATION
  Report Type: Spontaneous
  Country: US (occurrence: None)
  Receive Date: 20220707
  Receipt Date: 20220707
  Transmission Date: 20221027
  Serious: Yes (Hospitalization)
  Sender: FDA-Public Use
  Company Number: None

PATIENT
  Age: 67 Year
  Sex: Female

DRUGS (2)
  1. TACROLIMUS [Suspect]
     Active Substance: TACROLIMUS
     Indication: Renal disorder
     Dosage: 1 MG ORAL?? TAKE 2 CAPSULES BY MOUTH  EVERY 12 HOURS?
     Route: 048
     Dates: start: 20201013
  2. TACROLIMUS [Suspect]
     Active Substance: TACROLIMUS
     Dosage: FREQUENCY : EVERY 12 HOURS;?
     Route: 048
     Dates: start: 20201013

REACTIONS (2)
  - Pneumonia [None]
  - Haemodialysis [None]

NARRATIVE: CASE EVENT DATE: 20220528
